FAERS Safety Report 8587024 (Version 3)
Quarter: 2012Q4

REPORT INFORMATION
  Report Type: 
  Country: US (occurrence: US)
  Receive Date: 20120530
  Receipt Date: 20121220
  Transmission Date: 20130627
  Serious: No
  Sender: FDA-Public Use
  Company Number: US-PFIZER INC-2012126472

PATIENT
  Age: 64 Year
  Sex: Female
  Weight: 85 kg

DRUGS (5)
  1. LYRICA [Suspect]
     Indication: NERVE DAMAGE
     Dosage: 75 mg, two or three times a day
  2. METFORMIN HCL [Suspect]
     Indication: DIABETES
     Dosage: 1000 mg, 2x/day
  3. LANTUS SOLOSTAR [Suspect]
     Indication: DIABETES
     Dosage: 52 IU, 2x/day
  4. HUMALOG KWIKPEN [Suspect]
     Indication: DIABETES
     Dosage: 30 IU, 3x/day
  5. JANUVIA [Suspect]
     Indication: DIABETES
     Dosage: 100 mg, 1x/day

REACTIONS (4)
  - Drug ineffective [Unknown]
  - Pain in extremity [Unknown]
  - Musculoskeletal pain [Unknown]
  - Blood glucose abnormal [Unknown]
